FAERS Safety Report 8590655-2 (Version None)
Quarter: 2012Q3

REPORT INFORMATION
  Report Type: 
  Country: None (occurrence: None)
  Receive Date: 20120813
  Receipt Date: 20120810
  Transmission Date: 20120928
  Serious: No
  Sender: FDA-Public Use
  Company Number: US-PFIZER INC-2012195924

PATIENT
  Age: 23 Year
  Sex: Male
  Weight: 54.422 kg

DRUGS (4)
  1. NYQUIL COLD + FLU [Suspect]
     Indication: NASAL CONGESTION
     Dosage: UNK, AS NEEDED
     Dates: start: 20120406
  2. ADVIL PM [Suspect]
     Dosage: UNK
     Dates: start: 20120808
  3. ADVIL PM [Suspect]
     Indication: HEADACHE
     Dosage: 200 MG, AS NEEDED
     Dates: start: 20120408
  4. NYQUIL COLD + FLU [Suspect]
     Indication: HEADACHE
     Dosage: UNK
     Dates: start: 20120806

REACTIONS (1)
  - RESTLESS LEGS SYNDROME [None]
